FAERS Safety Report 4278306-9 (Version None)
Quarter: 2004Q1

REPORT INFORMATION
  Report Type: 
  Country: None (occurrence: None)
  Receive Date: 20040121
  Receipt Date: 20040121
  Transmission Date: 20041129
  Serious: Yes (Hospitalization)
  Sender: FDA-Public Use
  Company Number: None

PATIENT
  Age: 60 Year
  Sex: Male
  Weight: 90.91 kg

DRUGS (12)
  1. CISPLATIN [Suspect]
     Indication: BLADDER CANCER
     Dosage: 77 MG Q 7 D IV
     Route: 042
     Dates: start: 20031125
  2. CISPLATIN [Suspect]
     Indication: BLADDER CANCER
     Dosage: 77 MG Q 7 D IV
     Route: 042
     Dates: start: 20031202
  3. CISPLATIN [Suspect]
     Indication: BLADDER CANCER
     Dosage: 77 MG Q 7 D IV
     Route: 042
     Dates: start: 20031216
  4. CISPLATIN [Suspect]
     Indication: BLADDER CANCER
     Dosage: 77 MG Q 7 D IV
     Route: 042
     Dates: start: 20031223
  5. TAXOL [Suspect]
     Dosage: 110 MG Q 7 D IV
     Route: 042
     Dates: start: 20031126
  6. TAXOL [Suspect]
     Dosage: 110 MG Q 7 D IV
     Route: 042
     Dates: start: 20031202
  7. TAXOL [Suspect]
     Dosage: 110 MG Q 7 D IV
     Route: 042
     Dates: start: 20031216
  8. TAXOL [Suspect]
     Dosage: 110 MG Q 7 D IV
     Route: 042
     Dates: start: 20031223
  9. GEMZAR [Suspect]
     Dosage: 2200 MG Q 7 D IV
     Route: 042
     Dates: start: 20031126
  10. GEMZAR [Suspect]
     Dosage: 2200 MG Q 7 D IV
     Route: 042
     Dates: start: 20031202
  11. GEMZAR [Suspect]
     Dosage: 2200 MG Q 7 D IV
     Route: 042
     Dates: start: 20031216
  12. GEMZAR [Suspect]
     Dosage: 2200 MG Q 7 D IV
     Route: 042
     Dates: start: 20031223

REACTIONS (14)
  - ACTIVITIES OF DAILY LIVING IMPAIRED [None]
  - ANAEMIA [None]
  - ANOREXIA [None]
  - ASTHENIA [None]
  - ATRIAL FIBRILLATION [None]
  - FATIGUE [None]
  - FEELING ABNORMAL [None]
  - GASTROINTESTINAL HAEMORRHAGE [None]
  - HEART RATE INCREASED [None]
  - HYPERTONIC BLADDER [None]
  - IRRITABILITY [None]
  - NEPHROPATHY [None]
  - TACHYARRHYTHMIA [None]
  - THROMBOCYTOPENIA [None]
